FAERS Safety Report 4318763-2 (Version None)
Quarter: 2004Q1

REPORT INFORMATION
  Report Type: 
  Country: None (occurrence: None)
  Receive Date: 20040315
  Receipt Date: 20040303
  Transmission Date: 20041129
  Serious: Yes (Death, Hospitalization)
  Sender: FDA-Public Use
  Company Number: 163-20785-04030183(0)

PATIENT
  Age: 14 Year
  Sex: Female

DRUGS (1)
  1. THALOMID [Suspect]
     Indication: ASTROCYTOMA
     Dosage: 800 MG, DAILY, ORAL
     Route: 048
     Dates: start: 20040101, end: 20040201

REACTIONS (4)
  - COMA [None]
  - FEBRILE NEUTROPENIA [None]
  - LEUKOPENIA [None]
  - THROMBOCYTOPENIA [None]
